FAERS Safety Report 8022587-2 (Version None)
Quarter: 2012Q1

REPORT INFORMATION
  Report Type: 
  Country: None (occurrence: None)
  Receive Date: 20120104
  Receipt Date: 20111229
  Transmission Date: 20120608
  Serious: Yes (Other)
  Sender: FDA-Public Use
  Company Number: US-GLAXOSMITHKLINE-A0959680A

PATIENT
  Age: 54 Year
  Sex: Female

DRUGS (1)
  1. VOTRIENT [Suspect]
     Dosage: 800MG PER DAY
     Route: 065
     Dates: start: 20111221

REACTIONS (4)
  - HAEMOPTYSIS [None]
  - OESOPHAGEAL RUPTURE [None]
  - PRODUCTIVE COUGH [None]
  - FLANK PAIN [None]
